FAERS Safety Report 7707316-1 (Version None)
Quarter: 2011Q3

REPORT INFORMATION
  Report Type: 
  Country: None (occurrence: None)
  Receive Date: 20110824
  Receipt Date: 20110819
  Transmission Date: 20111222
  Serious: Yes (Hospitalization, Other)
  Sender: FDA-Public Use
  Company Number: US-ABBOTT-11P-163-0730747-00

PATIENT
  Age: 48 Year
  Sex: Female
  Weight: 72.64 kg

DRUGS (16)
  1. PENTASA [Concomitant]
     Indication: COLITIS ULCERATIVE
     Dosage: 2 CAPSULES
  2. LORAZEPAM [Concomitant]
     Indication: ANXIETY
     Dosage: 1 OR 2 TABLETS DAILY AS NEEDED
     Route: 048
  3. OMEPRAZOLE [Concomitant]
     Indication: GASTROOESOPHAGEAL REFLUX DISEASE
     Route: 048
  4. HUMIRA [Suspect]
     Indication: CROHN'S DISEASE
     Route: 058
     Dates: start: 20110512
  5. PROMETHAZINE [Concomitant]
     Indication: VOMITING
  6. OXYCODONE HCL [Concomitant]
     Indication: PAIN
     Route: 048
  7. FERROUS SULFATE TAB [Concomitant]
     Indication: MINERAL SUPPLEMENTATION
     Route: 048
  8. PROMETHAZINE [Concomitant]
     Indication: NAUSEA
     Route: 048
  9. ALBUTEROL SULFATE AUTOHALER [Concomitant]
     Indication: CHRONIC OBSTRUCTIVE PULMONARY DISEASE
     Dosage: VIA NEBULIZER AS NEEDED
     Route: 055
  10. GABAPENTIN [Concomitant]
     Indication: PAIN IN EXTREMITY
     Route: 048
  11. PREDNISONE [Concomitant]
     Indication: PRODUCT USED FOR UNKNOWN INDICATION
     Route: 048
  12. VITAMIN B COMPLEX CAP [Concomitant]
     Indication: VITAMIN SUPPLEMENTATION
     Route: 048
  13. ENTOCORT EC [Concomitant]
     Indication: CROHN'S DISEASE
     Route: 048
  14. SPIRIVA [Concomitant]
     Indication: CHRONIC OBSTRUCTIVE PULMONARY DISEASE
     Route: 055
  15. ACETYLCYSTEINE [Concomitant]
     Indication: CHRONIC OBSTRUCTIVE PULMONARY DISEASE
     Dosage: VIA NEBULIZER AS NEEDED
     Route: 055
  16. LISINOPRIL [Concomitant]
     Indication: HYPERTENSION
     Route: 048

REACTIONS (5)
  - RENAL FAILURE ACUTE [None]
  - RASH PAPULAR [None]
  - DEHYDRATION [None]
  - THROMBOSIS [None]
  - DEEP VEIN THROMBOSIS [None]
